FAERS Safety Report 5015248-5 (Version None)
Quarter: 2006Q2

REPORT INFORMATION
  Report Type: 
  Country: None (occurrence: None)
  Receive Date: 20060425
  Receipt Date: 20060124
  Transmission Date: 20061013
  Serious: No
  Sender: FDA-Public Use
  Company Number: 2006-BP-00864BP

PATIENT
  Age: 57 Year
  Sex: Female

DRUGS (3)
  1. APTIVUS/RITONAVIR CAPSULES [Suspect]
     Indication: HIV INFECTION
     Dosage: TPV/R: 1000 MG/400 MG (SEE TEXT,TPV/R STRENGTH: 500MG/200MG BID),PO
     Route: 048
     Dates: start: 20060103, end: 20060123
  2. TRUVADA [Concomitant]
  3. FUZEON [Concomitant]

REACTIONS (2)
  - EYE PRURITUS [None]
  - RASH [None]
